FAERS Safety Report 23954899 (Version 1)
Quarter: 2024Q2

REPORT INFORMATION
  Report Type: Other
  Country: KR (occurrence: KR)
  Receive Date: 20240610
  Receipt Date: 20240610
  Transmission Date: 20240716
  Serious: Yes (Hospitalization)
  Sender: FDA-Public Use
  Company Number: KR-OrBion Pharmaceuticals Private Limited-2157932

PATIENT

DRUGS (6)
  1. LEVETIRACETAM [Suspect]
     Active Substance: LEVETIRACETAM
     Indication: Generalised tonic-clonic seizure
     Route: 042
  2. LORAZEPAM [Suspect]
     Active Substance: LORAZEPAM
     Route: 065
  3. MAGNESIUM SULFATE [Suspect]
     Active Substance: MAGNESIUM SULFATE\MAGNESIUM SULFATE HEPTAHYDRATE
     Route: 065
  4. DEXTROSE [Suspect]
     Active Substance: DEXTROSE\DEXTROSE MONOHYDRATE
     Route: 065
  5. ROCURONIUM [Suspect]
     Active Substance: ROCURONIUM BROMIDE
     Route: 065
  6. PROPOFOL [Suspect]
     Active Substance: PROPOFOL
     Route: 065

REACTIONS (2)
  - Cyanosis neonatal [Recovered/Resolved]
  - Foetal exposure during pregnancy [Unknown]
